FAERS Safety Report 12755391 (Version 1)
Quarter: 2016Q3

REPORT INFORMATION
  Report Type: Spontaneous
  Country: FR (occurrence: FR)
  Receive Date: 20160916
  Receipt Date: 20160916
  Transmission Date: 20161109
  Serious: Yes (Other)
  Sender: FDA-Public Use
  Company Number: FR-SA-2016SA168715

PATIENT
  Sex: Male

DRUGS (4)
  1. FASTURTEC [Suspect]
     Active Substance: RASBURICASE
     Indication: BLOOD URIC ACID ABNORMAL
     Route: 065
  2. FASTURTEC [Suspect]
     Active Substance: RASBURICASE
     Indication: BLOOD URIC ACID ABNORMAL
     Dosage: DOSE=BETWEEN 0.15 AND 0.2 MG/KG
     Route: 065
  3. FASTURTEC [Suspect]
     Active Substance: RASBURICASE
     Indication: DISEASE PROGRESSION
     Dosage: DOSE=BETWEEN 0.15 AND 0.2 MG/KG
     Route: 065
  4. FASTURTEC [Suspect]
     Active Substance: RASBURICASE
     Indication: DISEASE PROGRESSION
     Route: 065

REACTIONS (2)
  - Therapeutic response delayed [Unknown]
  - Alloimmunisation [Unknown]
